FAERS Safety Report 7752896-3 (Version None)
Quarter: 2011Q3

REPORT INFORMATION
  Report Type: 
  Country: None (occurrence: None)
  Receive Date: 20110915
  Receipt Date: 20110909
  Transmission Date: 20111222
  Serious: Yes (Death)
  Sender: FDA-Public Use
  Company Number: US-GENZYME-FLUD-1001376

PATIENT
  Age: 18 Year
  Sex: Male

DRUGS (12)
  1. CYTARABINE [Suspect]
     Indication: ACUTE MYELOID LEUKAEMIA
  2. ETOPOSIDE [Suspect]
     Indication: ACUTE MYELOID LEUKAEMIA
  3. CLOLAR [Suspect]
     Indication: ACUTE MYELOID LEUKAEMIA
  4. FLUDARA [Suspect]
     Indication: ACUTE MYELOID LEUKAEMIA
  5. IDARUBICIN HCL [Suspect]
     Indication: BONE MARROW CONDITIONING REGIMEN
     Dosage: UNK
     Route: 065
  6. CYCLOPHOSPHAMIDE [Suspect]
     Indication: BONE MARROW CONDITIONING REGIMEN
     Dosage: 440 MG/M2, QDX5
     Route: 042
  7. CYCLOPHOSPHAMIDE [Suspect]
     Indication: ACUTE MYELOID LEUKAEMIA
  8. FLUDARA [Suspect]
     Indication: BONE MARROW CONDITIONING REGIMEN
     Dosage: UNK
     Route: 065
  9. ETOPOSIDE [Suspect]
     Indication: BONE MARROW CONDITIONING REGIMEN
     Dosage: 100 MG/M2, QDX5
     Route: 042
  10. CLOLAR [Suspect]
     Indication: BONE MARROW CONDITIONING REGIMEN
     Dosage: 40 MG/M2, QDX5
     Route: 042
  11. CYTARABINE [Suspect]
     Indication: BONE MARROW CONDITIONING REGIMEN
     Dosage: UNK
     Route: 065
  12. IDARUBICIN HCL [Suspect]
     Indication: ACUTE MYELOID LEUKAEMIA

REACTIONS (2)
  - NEOPLASM PROGRESSION [None]
  - ACUTE MYELOID LEUKAEMIA [None]
